FAERS Safety Report 10233534 (Version 1)
Quarter: 2014Q2

REPORT INFORMATION
  Report Type: Report from Study
  Country: ES (occurrence: ES)
  Receive Date: 20140612
  Receipt Date: 20140612
  Transmission Date: 20141212
  Serious: Yes (Hospitalization, Other)
  Sender: FDA-Public Use
  Company Number: ES-GLAXOSMITHKLINE-B0949352A

PATIENT
  Age: 30 Year
  Sex: Female

DRUGS (1)
  1. OFATUMUMAB [Suspect]
     Indication: HODGKIN^S DISEASE
     Dates: start: 20130906

REACTIONS (2)
  - Graft versus host disease in skin [Recovered/Resolved]
  - Gastrointestinal haemorrhage [Recovered/Resolved]
